FAERS Safety Report 9813219 (Version 3)
Quarter: 2014Q2

REPORT INFORMATION
  Report Type: Spontaneous
  Country: US (occurrence: US)
  Receive Date: 20140113
  Receipt Date: 20140630
  Transmission Date: 20141212
  Serious: Yes (Other)
  Sender: FDA-Public Use
  Company Number: US-BAYER-2014-003032

PATIENT
  Age: 64 Year
  Sex: Female
  Weight: 54.88 kg

DRUGS (4)
  1. BETASERON [Suspect]
     Indication: MULTIPLE SCLEROSIS
     Dosage: 0.25 MG, QOD
     Route: 058
     Dates: start: 20090828
  2. BETASERON [Suspect]
     Indication: MULTIPLE SCLEROSIS
     Dosage: 0.3 MG, QOD
     Route: 058
     Dates: start: 2014
  3. ZOLOFT [Concomitant]
     Dosage: 100 MG, QD
  4. VITAMIN D2 [Concomitant]
     Dosage: 2000 IU QD

REACTIONS (14)
  - Gastrointestinal disorder [None]
  - Systolic hypertension [None]
  - Conjunctivitis [Recovered/Resolved]
  - Exophthalmos [None]
  - Sinusitis [None]
  - Nasopharyngitis [Recovered/Resolved]
  - Cough [Recovered/Resolved]
  - Fatigue [Recovering/Resolving]
  - Influenza like illness [Not Recovered/Not Resolved]
  - Eye movement disorder [None]
  - Nystagmus [None]
  - Muscular weakness [None]
  - Upper motor neurone lesion [None]
  - Coordination abnormal [None]
